FAERS Safety Report 9177679 (Version 1)
Quarter: 2012Q4

REPORT INFORMATION
  Report Type: 
  Country: US (occurrence: US)
  Receive Date: 20121003
  Receipt Date: 20121003
  Transmission Date: 20130627
  Serious: Yes (Other)
  Sender: FDA-Public Use
  Company Number: US-RB-037319-12

PATIENT
  Age: 0 None
  Sex: Female

DRUGS (2)
  1. SUBUTEX [Suspect]
     Indication: DRUG DEPENDENCE
     Route: 064
     Dates: start: 201102, end: 20111123
  2. SUBUTEX [Suspect]
     Route: 063
     Dates: start: 20111123

REACTIONS (10)
  - Foetal exposure during pregnancy [Recovered/Resolved]
  - Dyspnoea [Recovered/Resolved]
  - Increased bronchial secretion [Recovered/Resolved]
  - Exposure during breast feeding [Not Recovered/Not Resolved]
  - Drug withdrawal syndrome neonatal [Recovered/Resolved]
  - Jaundice neonatal [Recovered/Resolved]
  - Agitation neonatal [Recovered/Resolved]
  - Hypotonia neonatal [Recovered/Resolved]
  - Diarrhoea neonatal [Recovered/Resolved]
  - Maternal drugs affecting foetus [None]
